FAERS Safety Report 19038971 (Version 1)
Quarter: 2021Q1

REPORT INFORMATION
  Report Type: Report from Study
  Country: US (occurrence: US)
  Receive Date: 20210322
  Receipt Date: 20210322
  Transmission Date: 20210420
  Serious: Yes (Other)
  Sender: FDA-Public Use
  Company Number: US-GLAXOSMITHKLINE-US2021AMR063701

PATIENT

DRUGS (1)
  1. BELANTAMAB MAFODOTIN. [Suspect]
     Active Substance: BELANTAMAB MAFODOTIN
     Indication: PRODUCT USED FOR UNKNOWN INDICATION
     Dosage: UNK
     Dates: start: 20210226

REACTIONS (7)
  - Swollen tongue [Recovered/Resolved]
  - Arthralgia [Unknown]
  - Pericarditis [Unknown]
  - Chest pain [Unknown]
  - Chills [Unknown]
  - Pyrexia [Unknown]
  - Feeling cold [Unknown]

NARRATIVE: CASE EVENT DATE: 20210226
